FAERS Safety Report 8401808-8 (Version None)
Quarter: 2012Q2

REPORT INFORMATION
  Report Type: 
  Country: None (occurrence: None)
  Receive Date: 20120529
  Receipt Date: 19920305
  Transmission Date: 20120825
  Serious: Yes (Other)
  Sender: FDA-Public Use
  Company Number: 003900

PATIENT
  Age: 62 Year
  Sex: Male

DRUGS (4)
  1. ELASTASE (ELASTASE) [Suspect]
     Dosage: 5400 IU
     Dates: start: 19920217, end: 19920225
  2. AMPHOTERICIN B [Suspect]
     Dosage: 12 ML
     Dates: start: 19920205, end: 19920319
  3. PLETAL [Suspect]
     Dosage: 100 MG, DAILY DOSE, ORAL
     Route: 048
     Dates: start: 19920210, end: 19920225
  4. INSULIN HUMAN(GENETICAL RECOMBINATION) (INSULIN HUMAN(GENETICAL RECOMI [Suspect]
     Dates: start: 19920217, end: 19920319

REACTIONS (12)
  - RENAL FAILURE [None]
  - DEPRESSED LEVEL OF CONSCIOUSNESS [None]
  - SKIN EROSION [None]
  - CARDIAC ARREST [None]
  - RASH PRURITIC [None]
  - INFECTED SKIN ULCER [None]
  - TOXIC EPIDERMAL NECROLYSIS [None]
  - HYPERTHERMIA [None]
  - RESPIRATORY ARREST [None]
  - SHOCK [None]
  - CIRCULATORY COLLAPSE [None]
  - PERIPHERAL COLDNESS [None]
